FAERS Safety Report 4895698-8 (Version None)
Quarter: 2006Q1

REPORT INFORMATION
  Report Type: 
  Country: None (occurrence: None)
  Receive Date: 20060125
  Receipt Date: 20060113
  Transmission Date: 20060701
  Serious: Yes (Hospitalization)
  Sender: FDA-Public Use
  Company Number: SU-2006-004511

PATIENT
  Age: 55 Year
  Sex: Female

DRUGS (2)
  1. BENICAR HCT [Suspect]
     Dosage: 40.125 MG PO
     Route: 048
  2. HORMONE REPLACEMENT THERAPY [Concomitant]

REACTIONS (1)
  - ALOPECIA [None]
